FAERS Safety Report 20173333 (Version 1)
Quarter: 2021Q4

REPORT INFORMATION
  Report Type: Spontaneous
  Country: NL (occurrence: NL)
  Receive Date: 20211211
  Receipt Date: 20211211
  Transmission Date: 20220303
  Serious: Yes (Life-Threatening, Hospitalization)
  Sender: FDA-Public Use
  Company Number: None

PATIENT
  Age: 15 Year
  Sex: Male
  Weight: 65 kg

DRUGS (4)
  1. NAPROXEN [Suspect]
     Active Substance: NAPROXEN
     Indication: Pain
     Dosage: 1000 MILLIGRAM DAILY; 2 X PER DAY 1 PIECE,/ BRAND NAME NOT SPECIFIED
     Dates: start: 20211113, end: 20211118
  2. OXYCODONE [Concomitant]
     Active Substance: OXYCODONE
     Dosage: 5 MG (MILLIGRAMS)MGA ,/BRAND NAME NOT SPECIFIED,THERAPY START DATE :THERAPY END DATE :ASKU
  3. OXYCODON  / OXYNORM [Concomitant]
     Dosage: 5 MG,INSTANT,MELTING TABLET,THERAPY START DATE :THERAPY END DATE:ASKU
  4. ACETAMINOPHEN [Concomitant]
     Active Substance: ACETAMINOPHEN
     Dosage: 500 MG (MILLIGRAM), / BRAND NAME NOT SPECIFIED,THERAPY START DATE:THERAPY END DATE:ASKU

REACTIONS (1)
  - Gastric ulcer perforation [Recovering/Resolving]

NARRATIVE: CASE EVENT DATE: 20211113
